FAERS Safety Report 26090066 (Version 1)
Quarter: 2025Q4

REPORT INFORMATION
  Report Type: Spontaneous
  Country: GB (occurrence: GB)
  Receive Date: 20251126
  Receipt Date: 20251126
  Transmission Date: 20260118
  Serious: Yes (Other)
  Sender: ACCORD
  Company Number: None

PATIENT
  Age: 62 Year
  Sex: Female
  Weight: 63 kg

DRUGS (3)
  1. ATORVASTATIN [Suspect]
     Active Substance: ATORVASTATIN
     Indication: Type IIa hyperlipidaemia
     Dosage: ONE TO BE TAKEN EACH NIGHT
     Dates: start: 20250522, end: 20250616
  2. BISOPROLOL [Concomitant]
     Active Substance: BISOPROLOL
     Dosage: ONE TO BE TAKEN IN THE MORNING
     Dates: start: 20250507
  3. PROCHLORPERAZINE [Concomitant]
     Active Substance: PROCHLORPERAZINE
     Indication: Sinus tachycardia
     Dosage: 1 THREE TIMES A DAY/AS NECESSARY (TDS/PRN) FOR NAUSEA AND DIZZINESS
     Dates: start: 20250528

REACTIONS (3)
  - Burning sensation [Recovered/Resolved]
  - Swelling [Recovered/Resolved]
  - Oral mucosal blistering [Recovered/Resolved]
